FAERS Safety Report 19703290 (Version 1)
Quarter: 2021Q3

REPORT INFORMATION
  Report Type: Other
  Country: CA (occurrence: CA)
  Receive Date: 20210816
  Receipt Date: 20210816
  Transmission Date: 20211014
  Serious: Yes (Disabling, Other)
  Sender: FDA-Public Use
  Company Number: CA-APOTEX-2021AP031899

PATIENT
  Age: 65 Year
  Sex: Male
  Weight: 88 kg

DRUGS (1)
  1. APO?ATORVASTATIN [Suspect]
     Active Substance: ATORVASTATIN
     Indication: BLOOD CHOLESTEROL INCREASED
     Dosage: 10 MILLIGRAM
     Route: 048

REACTIONS (5)
  - Headache [Recovering/Resolving]
  - Mobility decreased [Recovering/Resolving]
  - Impaired driving ability [Recovering/Resolving]
  - Neck pain [Recovering/Resolving]
  - Blood pressure increased [Recovering/Resolving]
